FAERS Safety Report 6038225-4 (Version None)
Quarter: 2009Q1

REPORT INFORMATION
  Report Type: 
  Country: None (occurrence: None)
  Receive Date: 20090113
  Receipt Date: 20090113
  Transmission Date: 20090719
  Serious: Yes (Other)
  Sender: FDA-Public Use
  Company Number: None

PATIENT
  Age: 61 Year
  Sex: Female
  Weight: 72.5755 kg

DRUGS (1)
  1. SINGULAIR [Suspect]
     Indication: RHINITIS
     Dosage: 10 MG 1 A DAY
     Dates: start: 20081101, end: 20081231

REACTIONS (4)
  - ANXIETY [None]
  - DEPRESSION [None]
  - MOOD ALTERED [None]
  - NERVOUSNESS [None]
